FAERS Safety Report 24556594 (Version 2)
Quarter: 2024Q4

REPORT INFORMATION
  Report Type: Report from Study
  Country: PT (occurrence: PT)
  Receive Date: 20241028
  Receipt Date: 20241218
  Transmission Date: 20250114
  Serious: Yes (Other)
  Sender: ABBVIE
  Company Number: PT-ABBVIE-5870879

PATIENT
  Age: 63 Year
  Sex: Female

DRUGS (3)
  1. CARBIDOPA\LEVODOPA [Suspect]
     Active Substance: CARBIDOPA\LEVODOPA
     Indication: Parkinson^s disease
     Dosage: 240 MG + 12 MG, HIGH:0.34ML/H;BASE:0.28ML/H;LOW:0.22ML/H
     Route: 058
     Dates: start: 20240731, end: 202408
  2. CARBIDOPA\LEVODOPA [Suspect]
     Active Substance: CARBIDOPA\LEVODOPA
     Dosage: 240 MG + 12 MG, HIGH:0.33ML/H;BASE:0.27ML/H;LOW:0.21ML/H
     Route: 058
     Dates: start: 202408, end: 20240808
  3. CARBIDOPA\LEVODOPA [Suspect]
     Active Substance: CARBIDOPA\LEVODOPA
     Dosage: 240 MG + 12 MG, HIGH:0.33ML/H;BASE:0.29ML/H;LOW:0.23ML/H
     Route: 058
     Dates: start: 20240808, end: 20240911

REACTIONS (11)
  - Infusion site swelling [Recovering/Resolving]
  - Infusion site pain [Recovered/Resolved]
  - Drug hypersensitivity [Unknown]
  - Urticaria [Recovered/Resolved]
  - Infusion site erythema [Recovered/Resolved]
  - Nodule [Recovered/Resolved]
  - Pruritus [Recovered/Resolved]
  - Infusion site pruritus [Recovered/Resolved]
  - Infusion site reaction [Recovered/Resolved]
  - Infusion site erythema [Recovered/Resolved]
  - Infusion site warmth [Recovered/Resolved]

NARRATIVE: CASE EVENT DATE: 20240101
